FAERS Safety Report 4989185-6 (Version None)
Quarter: 2006Q1

REPORT INFORMATION
  Report Type: 
  Country: None (occurrence: None)
  Receive Date: 20060309
  Receipt Date: 20051129
  Transmission Date: 20060701
  Serious: Yes (Other)
  Sender: FDA-Public Use
  Company Number: 426665

PATIENT

DRUGS (2)
  1. ISOTRETINOIN [Suspect]
     Dosage: ORAL
     Route: 048
  2. CONTRACEPTIVE (CONTRACEPTIVE NOS) [Concomitant]

REACTIONS (1)
  - PREGNANCY [None]
